FAERS Safety Report 18517639 (Version 2)
Quarter: 2020Q4

REPORT INFORMATION
  Report Type: Report from Study
  Country: US (occurrence: US)
  Receive Date: 20201118
  Receipt Date: 20201205
  Transmission Date: 20210114
  Serious: No
  Sender: FDA-Public Use
  Company Number: NVSC2020US300894

PATIENT
  Sex: Female

DRUGS (2)
  1. COSENTYX [Suspect]
     Active Substance: SECUKINUMAB
     Indication: PSORIASIS
     Dosage: 300 MG, OTHER (INJECT 2 PENS EVERY 3 WEEKS)
     Route: 058
     Dates: start: 20190308
  2. COSENTYX [Suspect]
     Active Substance: SECUKINUMAB
     Dosage: 300 MG, OTHER (3 PENS EVERY 3 WEEKS)
     Route: 058

REACTIONS (3)
  - Stress [Not Recovered/Not Resolved]
  - Psoriasis [Recovering/Resolving]
  - Nail disorder [Not Recovered/Not Resolved]
